FAERS Safety Report 4603509-0 (Version None)
Quarter: 2005Q1

REPORT INFORMATION
  Report Type: 
  Country: None (occurrence: None)
  Receive Date: 20050214
  Receipt Date: 20041124
  Transmission Date: 20050727
  Serious: No
  Sender: FDA-Public Use
  Company Number: USA041184579

PATIENT
  Age: 64 Year
  Sex: Male
  Weight: 114 kg

DRUGS (2)
  1. CIALIS [Suspect]
     Indication: ERECTILE DYSFUNCTION
     Dosage: 10 MG
     Dates: start: 20041101
  2. TYLENOL PM [Concomitant]

REACTIONS (3)
  - DRUG INEFFECTIVE [None]
  - MEMORY IMPAIRMENT [None]
  - POLLAKIURIA [None]
